FAERS Safety Report 21375948 (Version 1)
Quarter: 2022Q3

REPORT INFORMATION
  Report Type: Spontaneous
  Country: US (occurrence: None)
  Receive Date: 20220923
  Receipt Date: 20220923
  Transmission Date: 20221027
  Serious: No
  Sender: FDA-Public Use
  Company Number: None

PATIENT
  Sex: Male

DRUGS (2)
  1. FLUOXETINE [Suspect]
     Active Substance: FLUOXETINE HYDROCHLORIDE
  2. PARNATE [Suspect]
     Active Substance: TRANYLCYPROMINE SULFATE

REACTIONS (2)
  - Treatment failure [None]
  - Drug ineffective [None]
